FAERS Safety Report 6415153 (Version 2)
Quarter: 2013Q4

REPORT INFORMATION
  Report Type: Spontaneous
  Country: US (occurrence: US)
  Receive Date: 20070917
  Receipt Date: 20131011
  Transmission Date: 20140711
  Serious: Yes (Other)
  Sender: FDA-Public Use
  Company Number: US-ASTRAZENECA-2004UW16301

PATIENT
  Age: 58 Year
  Sex: Female
  Weight: 65.8 kg

DRUGS (19)
  1. SEROQUEL [Suspect]
     Indication: ANXIETY DISORDER
     Route: 048
     Dates: start: 200306
  2. SEROQUEL [Suspect]
     Indication: BIPOLAR I DISORDER
     Route: 048
     Dates: start: 200306
  3. SEROQUEL [Suspect]
     Indication: SLEEP DISORDER
     Route: 048
     Dates: start: 200306
  4. SEROQUEL [Suspect]
     Indication: ANXIETY DISORDER
     Route: 048
     Dates: start: 200310
  5. SEROQUEL [Suspect]
     Indication: BIPOLAR I DISORDER
     Route: 048
     Dates: start: 200310
  6. SEROQUEL [Suspect]
     Indication: SLEEP DISORDER
     Route: 048
     Dates: start: 200310
  7. SEROQUEL [Suspect]
     Indication: ANXIETY DISORDER
     Route: 048
     Dates: start: 2004, end: 200403
  8. SEROQUEL [Suspect]
     Indication: BIPOLAR I DISORDER
     Route: 048
     Dates: start: 2004, end: 200403
  9. SEROQUEL [Suspect]
     Indication: SLEEP DISORDER
     Route: 048
     Dates: start: 2004, end: 200403
  10. SEROQUEL [Suspect]
     Indication: ANXIETY DISORDER
     Route: 048
  11. SEROQUEL [Suspect]
     Indication: BIPOLAR I DISORDER
     Route: 048
  12. SEROQUEL [Suspect]
     Indication: SLEEP DISORDER
     Route: 048
  13. SEROQUEL [Suspect]
     Indication: ANXIETY DISORDER
     Route: 048
     Dates: start: 2013
  14. SEROQUEL [Suspect]
     Indication: BIPOLAR I DISORDER
     Route: 048
     Dates: start: 2013
  15. SEROQUEL [Suspect]
     Indication: SLEEP DISORDER
     Route: 048
     Dates: start: 2013
  16. PAXIL [Concomitant]
     Indication: DEPRESSION
  17. ATIVAN [Concomitant]
  18. COGENTIN [Concomitant]
  19. ZYPREXA [Concomitant]

REACTIONS (15)
  - Cataract [Unknown]
  - Eye disorder [Unknown]
  - Eye pruritus [Not Recovered/Not Resolved]
  - Eye discharge [Not Recovered/Not Resolved]
  - Eye irritation [Not Recovered/Not Resolved]
  - Weight decreased [Unknown]
  - Eye pain [Unknown]
  - Night blindness [Not Recovered/Not Resolved]
  - Anxiety [Not Recovered/Not Resolved]
  - Mood altered [Not Recovered/Not Resolved]
  - Depressed mood [Unknown]
  - Fear [Not Recovered/Not Resolved]
  - Depression [Not Recovered/Not Resolved]
  - Somnolence [Not Recovered/Not Resolved]
  - Psychomotor hyperactivity [Not Recovered/Not Resolved]
